FAERS Safety Report 6153387-6 (Version None)
Quarter: 2009Q2

REPORT INFORMATION
  Report Type: 
  Country: None (occurrence: None)
  Receive Date: 20090409
  Receipt Date: 20090325
  Transmission Date: 20091009
  Serious: Yes (Other)
  Sender: FDA-Public Use
  Company Number: 2009S1005279

PATIENT

DRUGS (3)
  1. DIAZEPAM [Suspect]
     Dosage: TRANSPLACENTAL
     Route: 064
  2. METHADONE HCL [Suspect]
     Dosage: TRANSPLACENTAL
     Route: 064
  3. NICOTINE [Suspect]
     Dosage: TRANSPLACENTAL
     Route: 064

REACTIONS (2)
  - DRUG WITHDRAWAL SYNDROME NEONATAL [None]
  - MATERNAL DRUGS AFFECTING FOETUS [None]
